FAERS Safety Report 5411512-6 (Version None)
Quarter: 2007Q3

REPORT INFORMATION
  Report Type: 
  Country: None (occurrence: None)
  Receive Date: 20070810
  Receipt Date: 20070808
  Transmission Date: 20080115
  Serious: Yes (Death, Hospitalization)
  Sender: FDA-Public Use
  Company Number: UG-BOEHRINGER INGELHEIM PHARMACEUTICALS, INC.-2007-BP-17622BP

PATIENT
  Sex: Male
  Weight: 6 kg

DRUGS (4)
  1. VIRAMUNE [Suspect]
     Indication: PROPHYLAXIS AGAINST HIV INFECTION
     Route: 048
     Dates: start: 20070324, end: 20070711
  2. PLACEBO (BLIND) [Suspect]
     Indication: PROPHYLAXIS AGAINST HIV INFECTION
     Route: 048
     Dates: start: 20070324, end: 20070711
  3. COTRIM [Concomitant]
  4. ORAL REHYDRATION SALTS [Concomitant]
     Route: 048

REACTIONS (2)
  - BRONCHOPNEUMONIA [None]
  - CARDIOPULMONARY FAILURE [None]
